FAERS Safety Report 11693106 (Version 1)
Quarter: 2015Q4

REPORT INFORMATION
  Report Type: Spontaneous
  Country: US (occurrence: US)
  Receive Date: 20151103
  Receipt Date: 20151103
  Transmission Date: 20160304
  Serious: Yes (Hospitalization, Other)
  Sender: FDA-Public Use
  Company Number: US-PURDUE PHARMA-USA-2015-0127112

PATIENT
  Age: 77 Year
  Sex: Male
  Weight: 79 kg

DRUGS (4)
  1. OXYCODONE HCL TABLETS (91-490) [Suspect]
     Active Substance: OXYCODONE HYDROCHLORIDE
     Indication: PRODUCT USED FOR UNKNOWN INDICATION
     Route: 048
  2. PREDNISONE. [Suspect]
     Active Substance: PREDNISONE
     Indication: PROSTATE CANCER
     Dosage: UNK
     Route: 065
     Dates: start: 20150427, end: 20150516
  3. OXYCONTIN [Suspect]
     Active Substance: OXYCODONE HYDROCHLORIDE
     Indication: PRODUCT USED FOR UNKNOWN INDICATION
     Route: 048
  4. ABIRATERONE ACETATE [Suspect]
     Active Substance: ABIRATERONE ACETATE
     Indication: PROSTATE CANCER
     Dosage: UNK
     Route: 065
     Dates: start: 20150427, end: 20150516

REACTIONS (14)
  - Diarrhoea [Unknown]
  - Nausea [Unknown]
  - Asthenia [Unknown]
  - Bone pain [Recovered/Resolved]
  - Gait disturbance [Unknown]
  - Fall [Unknown]
  - Hyperhidrosis [Unknown]
  - Orthostatic hypotension [Unknown]
  - Presyncope [Unknown]
  - Syncope [Recovered/Resolved]
  - Arthralgia [Unknown]
  - Faecal incontinence [Recovering/Resolving]
  - Dehydration [Unknown]
  - Constipation [Unknown]

NARRATIVE: CASE EVENT DATE: 20150428
